FAERS Safety Report 9207297 (Version 1)
Quarter: 2013Q1

REPORT INFORMATION
  Report Type: Spontaneous
  Country: US (occurrence: None)
  Receive Date: 20120807
  Receipt Date: 20120807
  Transmission Date: 20140127
  Serious: Yes (Other)
  Sender: FDA-Public Use
  Company Number: 2011P1009111

PATIENT
  Sex: Female

DRUGS (8)
  1. CIPROFLOXACIN [Suspect]
     Indication: CYSTITIS
     Dates: start: 201109
  2. LEVOTHYROXINE [Concomitant]
  3. NITROGLYCERINE [Concomitant]
  4. LEVOFLAVANOID [Concomitant]
  5. LISINOPRIL [Concomitant]
  6. PLAVEX [Concomitant]
  7. PREVASTATIVE [Concomitant]
  8. ASPIRIN [Concomitant]

REACTIONS (3)
  - Dizziness [None]
  - Tinnitus [None]
  - Balance disorder [None]
